FAERS Safety Report 6420862-6 (Version None)
Quarter: 2009Q4

REPORT INFORMATION
  Report Type: 
  Country: None (occurrence: None)
  Receive Date: 20091030
  Receipt Date: 20091020
  Transmission Date: 20100525
  Serious: Yes (Other)
  Sender: FDA-Public Use
  Company Number: GB-RANBAXY-2007RR-05406

PATIENT
  Age: 20 Year
  Sex: Male

DRUGS (1)
  1. CIPROFLOXACIN [Suspect]

REACTIONS (3)
  - HYPNAGOGIC HALLUCINATION [None]
  - NIGHTMARE [None]
  - SCREAMING [None]
